FAERS Safety Report 8014307-2 (Version None)
Quarter: 2011Q4

REPORT INFORMATION
  Report Type: 
  Country: None (occurrence: None)
  Receive Date: 20111229
  Receipt Date: 20111219
  Transmission Date: 20120403
  Serious: Yes (Other)
  Sender: FDA-Public Use
  Company Number: CZ-ABBOTT-11P-217-0853196-01

PATIENT
  Sex: Male
  Weight: 85 kg

DRUGS (5)
  1. AZATHIOPRINE [Concomitant]
     Indication: CROHN'S DISEASE
  2. HUMIRA [Suspect]
     Route: 058
     Dates: end: 20110908
  3. PREDNISONE TAB [Concomitant]
     Indication: CROHN'S DISEASE
  4. MESALAMINE [Concomitant]
     Indication: CROHN'S DISEASE
  5. HUMIRA [Suspect]
     Indication: CROHN'S DISEASE
     Route: 058
     Dates: start: 20091013

REACTIONS (5)
  - PROCTALGIA [None]
  - ANAL PRURITUS [None]
  - MASS [None]
  - NEOPLASM MALIGNANT [None]
  - RECTAL CANCER [None]
